FAERS Safety Report 13005625 (Version 1)
Quarter: 2016Q4

REPORT INFORMATION
  Report Type: Spontaneous
  Country: US (occurrence: US)
  Receive Date: 20161207
  Receipt Date: 20161207
  Transmission Date: 20170207
  Serious: No
  Sender: FDA-Public Use
  Company Number: US-JNJFOC-20161024964

PATIENT
  Age: 70 Year
  Sex: Female
  Weight: 81.65 kg

DRUGS (8)
  1. LOSARTAN. [Concomitant]
     Active Substance: LOSARTAN
     Indication: HYPERTENSION
     Route: 065
  2. ATENOLOL. [Concomitant]
     Active Substance: ATENOLOL
     Indication: HYPERTENSION
     Route: 065
  3. ZETIA [Concomitant]
     Active Substance: EZETIMIBE
     Indication: BLOOD CHOLESTEROL INCREASED
     Route: 065
  4. FENTANYL. [Suspect]
     Active Substance: FENTANYL
     Indication: SPINAL FRACTURE
     Route: 062
     Dates: start: 2014, end: 2016
  5. METFORMIN [Concomitant]
     Active Substance: METFORMIN HYDROCHLORIDE
     Indication: DIABETES MELLITUS
     Route: 065
  6. FENTANYL. [Suspect]
     Active Substance: FENTANYL
     Indication: SPINAL FRACTURE
     Route: 062
     Dates: start: 2016, end: 201609
  7. LIPITOR [Concomitant]
     Active Substance: ATORVASTATIN CALCIUM
     Indication: BLOOD CHOLESTEROL ABNORMAL
     Route: 065
  8. FENTANYL. [Suspect]
     Active Substance: FENTANYL
     Indication: SPINAL FRACTURE
     Route: 062
     Dates: start: 201609

REACTIONS (4)
  - Inappropriate schedule of drug administration [Unknown]
  - Intentional product use issue [Unknown]
  - Nervousness [Not Recovered/Not Resolved]
  - Poor quality sleep [Not Recovered/Not Resolved]

NARRATIVE: CASE EVENT DATE: 201603
